FAERS Safety Report 6107962-5 (Version None)
Quarter: 2009Q1

REPORT INFORMATION
  Report Type: 
  Country: None (occurrence: None)
  Receive Date: 20090309
  Receipt Date: 20090206
  Transmission Date: 20090719
  Serious: No
  Sender: FDA-Public Use
  Company Number: US-BAYER-200814058BCC

PATIENT
  Age: 17 Year
  Sex: Female
  Weight: 95 kg

DRUGS (2)
  1. ALEVE [Suspect]
     Indication: SELF INJURIOUS BEHAVIOUR
     Dosage: UNIT DOSE: 220 MG
     Route: 048
     Dates: start: 20081010
  2. ALEVE [Suspect]
     Dosage: TOTAL DAILY DOSE: 4840 MG  UNIT DOSE: 220 MG
     Route: 048
     Dates: start: 20081010

REACTIONS (1)
  - NO ADVERSE EVENT [None]
